FAERS Safety Report 10664145 (Version 1)
Quarter: 2014Q4

REPORT INFORMATION
  Report Type: Spontaneous
  Country: US (occurrence: None)
  Receive Date: 20141205
  Receipt Date: 20141205
  Transmission Date: 20150529
  Serious: No
  Sender: FDA-Public Use
  Company Number: 163-POMAL-14074252

PATIENT
  Age: 52 Year
  Sex: Male

DRUGS (17)
  1. CALCIUM CARBONATE. [Concomitant]
     Active Substance: CALCIUM CARBONATE
  2. FLUOXETINE HCL(FLUOXETINE HYDROCHLORIDE) [Concomitant]
  3. VITAMIN D3(COLECALCIFEROL) [Concomitant]
  4. BACTRIM DS(SULFAMETHOXAZOLE, TRIMETHOPRIM) [Concomitant]
  5. FENTANYL(FENTANYL) [Concomitant]
     Active Substance: FENTANYL CITRATE
  6. OMEPRAZOLE(OMEPRAZOLE) [Concomitant]
     Active Substance: OMEPRAZOLE
  7. VALIUM(DIAZEPAM) [Concomitant]
  8. MULTIVITAMINS(ERGOCALCIFEROL, ASCORBIC ACID, FOLIC ACID, THIAMINE HYDROCHLORIDE, RETINOL, RIBOFLAVIN, NICOTINAMIDE, PANTHENOL) [Concomitant]
  9. BACTRIM DS(SULFAMETHOXAZOLE, TRIMETHOPRIM) [Concomitant]
  10. PREDNISONE(PREDNISONE) [Concomitant]
  11. ACYCLOVIR (ACICLOVIR) [Concomitant]
  12. ATIVAN [Concomitant]
     Active Substance: LORAZEPAM
  13. POMALYST [Suspect]
     Active Substance: POMALIDOMIDE
     Indication: PLASMA CELL MYELOMA
     Dosage: 21 IN 21 D
     Route: 048
     Dates: start: 20140617
  14. BUSPIRONE HCL(BUSPIRONE HYDROCHLORIDE) [Concomitant]
  15. FOLIC ACID(FOLIC ACID) [Concomitant]
  16. WELLBUTRIN(BUPROPION HYDROCHLORIDE) [Concomitant]
  17. RESTASIS(CICLOSPORIN) [Concomitant]

REACTIONS (2)
  - Fatigue [None]
  - Respiratory disorder [None]

NARRATIVE: CASE EVENT DATE: 2014
